FAERS Safety Report 8320630-4 (Version None)
Quarter: 2012Q2

REPORT INFORMATION
  Report Type: 
  Country: None (occurrence: None)
  Receive Date: 20120430
  Receipt Date: 20120418
  Transmission Date: 20120825
  Serious: No
  Sender: FDA-Public Use
  Company Number: US-BAYER-2012-040221

PATIENT

DRUGS (4)
  1. MUSCLE RELAXANTS [Concomitant]
  2. NAPROXEN SODIUM [Suspect]
     Indication: ANALGESIC THERAPY
     Route: 048
  3. VICODIN [Concomitant]
  4. VALIUM [Concomitant]

REACTIONS (1)
  - PAIN [None]
